FAERS Safety Report 8023940-3 (Version None)
Quarter: 2012Q1

REPORT INFORMATION
  Report Type: 
  Country: None (occurrence: None)
  Receive Date: 20120105
  Receipt Date: 20111228
  Transmission Date: 20120608
  Serious: Yes (Hospitalization)
  Sender: FDA-Public Use
  Company Number: AT-PFIZER INC-2011288180

PATIENT
  Age: 63 Year
  Sex: Male
  Weight: 66 kg

DRUGS (22)
  1. ANTIFLAT [Concomitant]
     Dosage: UNK, AS NEEDED
     Dates: start: 20111117
  2. ENTEROBENE [Concomitant]
     Dosage: 2 MG, UNK
     Dates: start: 20111128, end: 20111129
  3. PANTOPRAZOLE SODIUM [Concomitant]
     Dosage: 20 MG, DAILY
     Dates: start: 20110905
  4. NAVOBAN [Concomitant]
     Dosage: 5 MG, DAILY AS NEEDED
     Dates: start: 20110920
  5. LAEVOLAC [Concomitant]
     Dosage: 1 SPOON DAILY
     Dates: start: 20111003
  6. CAMPTOSAR [Suspect]
     Indication: GASTRIC CANCER
     Dosage: 125 MG/M2, EVERY 2 WEEKS
     Route: 042
     Dates: start: 20110906
  7. PANTOPRAZOLE SODIUM [Concomitant]
     Dosage: 40 MG, DAILY
     Dates: start: 20111116
  8. MYCOSTATIN [Concomitant]
     Dosage: 4 ML, 3X/DAY
     Dates: start: 20111003
  9. DIPIDOLOR [Concomitant]
     Dosage: 0.5 AMPOULE, UNK
     Dates: start: 20111127, end: 20111127
  10. DURAGESIC-100 [Concomitant]
     Dosage: UNK
     Dates: start: 20111129
  11. DULCOLAX [Concomitant]
     Dosage: 2 DF, DAILY
     Dates: start: 20110905
  12. SUCRALAN [Concomitant]
     Dosage: 1G/5ML DAILY
     Dates: start: 20111031
  13. ACETAMINOPHEN [Concomitant]
     Dosage: 1 G, UNK
     Dates: start: 20111125, end: 20111125
  14. METOCLOPRAMIDE HYDROCHLORIDE [Concomitant]
     Dosage: 1 AMPOULE, UNK
     Dates: start: 20111125, end: 20111129
  15. AVASTIN [Suspect]
     Indication: GASTRIC CANCER
     Dosage: 5 MG/KG, EVERY 2 WEEKS
     Route: 042
     Dates: start: 20110906
  16. MOTILIUM [Concomitant]
     Dosage: 20 MG AND 60 MG DAILY
     Dates: start: 20110330
  17. HYDROMORPHONE HCL [Concomitant]
     Dosage: 4 MG, AS NEEDED
     Dates: start: 20111114, end: 20111129
  18. DIPIDOLOR [Concomitant]
     Dosage: 1 AMPOULE, UNK
     Dates: start: 20111128, end: 20111128
  19. ELOXATIN [Suspect]
     Indication: GASTRIC CANCER
     Dosage: 85 MG/M2, EVERY 2 WEEKS
     Route: 042
     Dates: start: 20110906
  20. GLANDOMED [Concomitant]
     Dosage: UNK
     Dates: start: 20110913
  21. REQUIP [Concomitant]
     Dosage: 0.25 MG, DAILY
     Dates: start: 20110801
  22. RATIOGRASTIM [Concomitant]
     Dosage: UNK
     Dates: start: 20111125, end: 20111126

REACTIONS (2)
  - VOMITING [None]
  - GASTROOESOPHAGEAL REFLUX DISEASE [None]
